FAERS Safety Report 14018259 (Version 1)
Quarter: 2017Q3

REPORT INFORMATION
  Report Type: Spontaneous
  Country: US (occurrence: US)
  Receive Date: 20170927
  Receipt Date: 20170927
  Transmission Date: 20171128
  Serious: Yes (Death)
  Sender: FDA-Public Use
  Company Number: None

PATIENT
  Age: 53 Year
  Sex: Female

DRUGS (5)
  1. IMATINIB [Suspect]
     Active Substance: IMATINIB
     Indication: LEUKAEMIA
     Route: 048
     Dates: start: 20170721
  2. METOPROLOL TARTRATE. [Concomitant]
     Active Substance: METOPROLOL TARTRATE
  3. MORPHINE [Concomitant]
     Active Substance: MORPHINE
  4. MULTI VITAMIN [Concomitant]
     Active Substance: VITAMINS
  5. OXYCODONE [Concomitant]
     Active Substance: OXYCODONE

REACTIONS (1)
  - Medical induction of coma [None]

NARRATIVE: CASE EVENT DATE: 20170910
